FAERS Safety Report 9827178 (Version 1)
Quarter: 2014Q1

REPORT INFORMATION
  Report Type: Spontaneous
  Country: US (occurrence: US)
  Receive Date: 20140117
  Receipt Date: 20140117
  Transmission Date: 20141002
  Serious: Yes (Other)
  Sender: FDA-Public Use
  Company Number: US-GLAXOSMITHKLINE-A1044585A

PATIENT
  Sex: Male

DRUGS (2)
  1. PROMACTA [Suspect]
     Indication: HEPATITIS C
     Route: 048
  2. UNKNOWN [Concomitant]

REACTIONS (2)
  - Portal vein thrombosis [Unknown]
  - Ascites [Unknown]
